FAERS Safety Report 10448721 (Version 2)
Quarter: 2014Q3

REPORT INFORMATION
  Report Type: Spontaneous
  Country: DE (occurrence: DE)
  Receive Date: 20140912
  Receipt Date: 20140912
  Transmission Date: 20150326
  Serious: Yes (Other)
  Sender: FDA-Public Use
  Company Number: DE-UCBSA-117104

PATIENT
  Age: 72 Year
  Sex: Male

DRUGS (6)
  1. AMLODIPIN 10 [Concomitant]
     Indication: HYPERTENSION
     Dosage: 1-0-0, PERMANANENT MEDICATION
     Route: 048
  2. SIMVASTATIN 40 [Suspect]
     Active Substance: SIMVASTATIN
     Dosage: HALF A TABLET ONCE PER DAY 0-0-1/2
     Route: 048
  3. L-THYROXIN [Concomitant]
     Active Substance: LEVOTHYROXINE SODIUM
     Indication: THYROIDITIS
     Dosage: 100 ?G, ONCE DAILY (QD) (1-0-0), PERMANENT MEDICATION
     Route: 048
  4. VIMPAT [Suspect]
     Active Substance: LACOSAMIDE
     Dosage: DOSE PER INTAKE : 100, HALF A TABLET BID (1/2-0-1/2), STRENGTH: 200
     Route: 048
  5. KEPPRA [Suspect]
     Active Substance: LEVETIRACETAM
     Dosage: HALF A TABLET BID (1/2-0-1/2), STRENGTH: 1000
     Route: 048
  6. OMEPRAZOL 20 [Concomitant]
     Indication: GASTRITIS
     Dosage: 20 MG, ONCE DAILY (QD) (1-0-0), PERMANENT MEDICATION
     Route: 048

REACTIONS (5)
  - Cholelithiasis [Recovering/Resolving]
  - Wrong technique in drug usage process [Unknown]
  - Gamma-glutamyltransferase increased [Recovering/Resolving]
  - Drug intolerance [Unknown]
  - Transaminases increased [Recovering/Resolving]

NARRATIVE: CASE EVENT DATE: 20140320
